FAERS Safety Report 4519506-X (Version None)
Quarter: 2005Q1

REPORT INFORMATION
  Report Type: 
  Country: None (occurrence: None)
  Receive Date: 20041101
  Receipt Date: 20040715
  Transmission Date: 20050727
  Serious: Yes (Other)
  Sender: FDA-Public Use
  Company Number: HQWYE266620JUL04

PATIENT
  Age: 45 Year
  Sex: Female

DRUGS (3)
  1. PREMARIN [Suspect]
     Indication: HOT FLUSH
     Dosage: 0.625 DAILY, ORAL
     Route: 048
     Dates: start: 20040601, end: 20040709
  2. KEFLEX [Concomitant]
  3. ERYTHROMYCIN [Concomitant]

REACTIONS (3)
  - CANDIDIASIS [None]
  - MUSCLE SPASMS [None]
  - SINUSITIS [None]
